FAERS Safety Report 8880308 (Version 2)
Quarter: 2012Q4

REPORT INFORMATION
  Report Type: 
  Country: US (occurrence: US)
  Receive Date: 20121101
  Receipt Date: 20121218
  Transmission Date: 20130627
  Serious: Yes (Other)
  Sender: FDA-Public Use
  Company Number: US-PFIZER INC-2012266832

PATIENT
  Age: 20 Year
  Sex: Female
  Weight: 35.8 kg

DRUGS (1)
  1. DEPO-PROVERA [Suspect]
     Indication: MENSTRUAL DISORDER
     Dosage: 150 mg, every 3 months
     Route: 030
     Dates: start: 20121009

REACTIONS (2)
  - Livedo reticularis [Recovered/Resolved]
  - Off label use [Unknown]
